FAERS Safety Report 10086676 (Version 1)
Quarter: 2014Q2

REPORT INFORMATION
  Report Type: Spontaneous
  Country: US (occurrence: None)
  Receive Date: 20140417
  Receipt Date: 20140417
  Transmission Date: 20141212
  Serious: Yes (Hospitalization)
  Sender: FDA-Public Use
  Company Number: None

PATIENT
  Age: 67 Year
  Sex: Male
  Weight: 63.96 kg

DRUGS (18)
  1. TAXOTERE [Suspect]
     Indication: LUNG CANCER METASTATIC
     Route: 042
     Dates: start: 20140218, end: 20140401
  2. NEULASTA [Concomitant]
  3. DECADRON [Concomitant]
  4. ZOMETA [Concomitant]
  5. AMOXICILLIN [Concomitant]
  6. TRAZODONE [Concomitant]
  7. SAW PALMETTO [Concomitant]
  8. PREDNISONE [Concomitant]
  9. NICODERM CQ [Concomitant]
  10. MIRTAZAPINE [Concomitant]
  11. METHIMAZOLE [Concomitant]
  12. LIPITOR [Concomitant]
  13. IPRATROPIUM-ALBUTEROL [Concomitant]
  14. DIOVAN [Concomitant]
  15. MVI [Concomitant]
  16. ALPRAZOLAM [Concomitant]
  17. ALLEGRA [Concomitant]
  18. ACETAMINOPHEN [Concomitant]

REACTIONS (2)
  - Hypoxia [None]
  - Pneumonitis [None]
